FAERS Safety Report 7278698-2 (Version None)
Quarter: 2011Q1

REPORT INFORMATION
  Report Type: 
  Country: None (occurrence: None)
  Receive Date: 20110207
  Receipt Date: 20110125
  Transmission Date: 20110831
  Serious: Yes (Hospitalization, Other)
  Sender: FDA-Public Use
  Company Number: PHHY2011US07575

PATIENT
  Age: 16 Year
  Sex: Male

DRUGS (4)
  1. FLUOXETINE [Suspect]
     Indication: BIPOLAR DISORDER
     Dosage: 30 MG, DAILY
  2. ARIPIPRAZOLE [Suspect]
     Indication: BIPOLAR DISORDER
     Dosage: 5 MG, DAILY
  3. ARIPIPRAZOLE [Suspect]
     Dosage: 10 MG, DAILY
  4. LITHIUM [Suspect]
     Dosage: 450 MG, BID

REACTIONS (28)
  - ASTHENIA [None]
  - DRUG RASH WITH EOSINOPHILIA AND SYSTEMIC SYMPTOMS [None]
  - PYREXIA [None]
  - LEUKOCYTOSIS [None]
  - TACHYCARDIA [None]
  - UROBILINOGEN URINE [None]
  - EPSTEIN-BARR VIRUS ANTIBODY POSITIVE [None]
  - RHABDOMYOLYSIS [None]
  - EXCORIATION [None]
  - DRUG ERUPTION [None]
  - PROTEIN URINE PRESENT [None]
  - FATIGUE [None]
  - RASH ERYTHEMATOUS [None]
  - TACHYPNOEA [None]
  - MYALGIA [None]
  - HEPATITIS [None]
  - BLOOD CREATINE PHOSPHOKINASE INCREASED [None]
  - BLOOD CREATININE INCREASED [None]
  - RASH GENERALISED [None]
  - HAEMATURIA [None]
  - MYOGLOBIN URINE PRESENT [None]
  - LYMPHADENOPATHY [None]
  - RASH MORBILLIFORM [None]
  - RASH PRURITIC [None]
  - LYMPHOCYTOSIS [None]
  - HERPES SIMPLEX SEROLOGY POSITIVE [None]
  - EOSINOPHILIA [None]
  - C-REACTIVE PROTEIN INCREASED [None]
